FAERS Safety Report 4690451-2 (Version None)
Quarter: 2005Q2

REPORT INFORMATION
  Report Type: 
  Country: None (occurrence: None)
  Receive Date: 20050614
  Receipt Date: 20050614
  Transmission Date: 20051028
  Serious: Yes (Other)
  Sender: FDA-Public Use
  Company Number: None

PATIENT
  Age: 55 Year
  Sex: Female
  Weight: 83.9154 kg

DRUGS (5)
  1. STRATTERA [Suspect]
     Indication: ATTENTION DEFICIT/HYPERACTIVITY DISORDER
     Dosage: 40MG  2X DAILY ORAL
     Route: 048
     Dates: start: 20040515, end: 20041215
  2. SYNTHROID [Concomitant]
  3. ADDERALL [Concomitant]
  4. ESTRATEST [Concomitant]
  5. DIOVAN HCT [Concomitant]

REACTIONS (7)
  - ACTIVITIES OF DAILY LIVING IMPAIRED [None]
  - ARTHRALGIA [None]
  - DIFFICULTY IN WALKING [None]
  - FATIGUE [None]
  - MYALGIA [None]
  - POISONING [None]
  - RENAL PAIN [None]
